FAERS Safety Report 5047702-4 (Version None)
Quarter: 2006Q2

REPORT INFORMATION
  Report Type: 
  Country: None (occurrence: None)
  Receive Date: 20060601
  Receipt Date: 20060203
  Transmission Date: 20061013
  Serious: No
  Sender: FDA-Public Use
  Company Number: US200602001024

PATIENT
  Age: 34 Year
  Sex: Female

DRUGS (1)
  1. CYMBALTA [Suspect]
     Dates: start: 20050101

REACTIONS (1)
  - ECONOMIC PROBLEM [None]
